FAERS Safety Report 18551377 (Version 3)
Quarter: 2020Q4

REPORT INFORMATION
  Report Type: Spontaneous
  Country: JP (occurrence: JP)
  Receive Date: 20201126
  Receipt Date: 20201217
  Transmission Date: 20210114
  Serious: Yes (Hospitalization, Other)
  Sender: FDA-Public Use
  Company Number: NVSJ2020JP012334

PATIENT
  Age: 49 Year
  Sex: Female

DRUGS (1)
  1. ILARIS [Suspect]
     Active Substance: CANAKINUMAB
     Indication: FAMILIAL MEDITERRANEAN FEVER
     Dosage: UNK
     Route: 065
     Dates: start: 201904

REACTIONS (10)
  - Vulval ulceration [Recovering/Resolving]
  - Arthralgia [Recovering/Resolving]
  - Aphthous ulcer [Recovering/Resolving]
  - Deep vein thrombosis [Unknown]
  - Large intestine erosion [Unknown]
  - Behcet^s syndrome [Unknown]
  - Dermatitis acneiform [Unknown]
  - Scar [Unknown]
  - Inflammation [Recovered/Resolved]
  - Arthritis [Unknown]
